FAERS Safety Report 9185806 (Version 1)
Quarter: 2013Q1

REPORT INFORMATION
  Report Type: Spontaneous
  Country: US (occurrence: None)
  Receive Date: 20120628
  Receipt Date: 20120628
  Transmission Date: 20140127
  Serious: Yes (Disabling)
  Sender: FDA-Public Use
  Company Number: PHEH2011US03239

PATIENT
  Age: 66 Year
  Sex: Female
  Weight: 55 kg

DRUGS (1)
  1. RECLAST (ZOLEDRONATE) SOULTION FOR INJECTION [Suspect]
     Dosage: 5 MG YEARLY
     Dates: start: 20110825

REACTIONS (4)
  - Influenza like illness [None]
  - Musculoskeletal pain [None]
  - Pain [None]
  - Pain in extremity [None]
